FAERS Safety Report 5763158-8 (Version None)
Quarter: 2008Q2

REPORT INFORMATION
  Report Type: 
  Country: None (occurrence: None)
  Receive Date: 20080604
  Receipt Date: 20080522
  Transmission Date: 20081010
  Serious: Yes (Hospitalization)
  Sender: FDA-Public Use
  Company Number: 2007BI025174

PATIENT
  Age: 50 Year
  Sex: Female

DRUGS (1)
  1. AVONEX [Suspect]
     Indication: MULTIPLE SCLEROSIS
     Dosage: 30 UG, QW, IM
     Route: 030
     Dates: start: 20070523

REACTIONS (10)
  - ABASIA [None]
  - ATROPHY [None]
  - CONDITION AGGRAVATED [None]
  - DEAFNESS [None]
  - DIZZINESS [None]
  - HYPOAESTHESIA [None]
  - LUNG NEOPLASM [None]
  - MULTIPLE SCLEROSIS [None]
  - OPTIC NEURITIS [None]
  - SPEECH DISORDER [None]
